FAERS Safety Report 8191725-3 (Version None)
Quarter: 2012Q1

REPORT INFORMATION
  Report Type: 
  Country: None (occurrence: None)
  Receive Date: 20120307
  Receipt Date: 20120301
  Transmission Date: 20120608
  Serious: Yes (Death, Hospitalization, Disabling, Other)
  Sender: FDA-Public Use
  Company Number: US-CELGENEUS-163-21880-10072251

PATIENT
  Sex: Male

DRUGS (39)
  1. GABAPENTIN [Concomitant]
     Dosage: 600 MILLIGRAM
     Route: 048
  2. MS CONTIN [Concomitant]
     Dosage: 30 MILLIGRAM
     Route: 048
  3. KLOR-CON [Concomitant]
     Dosage: 20 MILLIEQUIVALENTS
     Route: 048
  4. OXYBUTYNIN CHLORIDE [Concomitant]
     Dosage: 5 MILLIGRAM
     Route: 065
  5. LOVENOX [Concomitant]
     Dosage: 100 MILLIGRAM/MILLILITERS
     Route: 065
  6. PRANDIN [Concomitant]
     Dosage: .5 MILLIGRAM
     Route: 048
  7. KEPPRA [Concomitant]
     Dosage: 500 MILLIGRAM
     Route: 048
  8. LACTULOSE [Concomitant]
     Dosage: 20 GRAM
     Route: 048
  9. MULTI-VITAMINS [Concomitant]
     Dosage: 1 TABLET
     Route: 048
  10. VESICARE [Concomitant]
     Dosage: 5 MILLIGRAM
     Route: 065
  11. ALKERAN [Concomitant]
     Dosage: 5 TABLET
     Route: 065
  12. NICODERM [Concomitant]
     Route: 062
  13. CHOLESTYRAMINE [Concomitant]
     Dosage: 4 GRAM
     Route: 048
  14. VELCADE [Suspect]
     Indication: MULTIPLE MYELOMA
     Route: 065
  15. EUCERIN [Concomitant]
     Dosage: 120 GRAM
     Route: 065
  16. SERTRALINE HYDROCHLORIDE [Concomitant]
     Dosage: 50 MILLIGRAM
     Route: 065
  17. NEURONTIN [Concomitant]
     Dosage: 100 MILLIGRAM
     Route: 065
  18. AMITIZA [Concomitant]
     Dosage: 24 MICROGRAM
     Route: 065
  19. ALLOPURINOL [Concomitant]
     Dosage: 300 MILLIGRAM
     Route: 065
  20. BENADRYL [Concomitant]
     Dosage: 25 MILLIGRAM
     Route: 048
  21. PLATELETS [Concomitant]
     Route: 065
  22. REVLIMID [Suspect]
     Indication: MULTIPLE MYELOMA
     Dosage: 25 MILLIGRAM
     Route: 048
     Dates: start: 20100301, end: 20100901
  23. TEMAZEPAM [Concomitant]
     Dosage: 30 MILLIGRAM
     Route: 065
  24. LIDODERM [Concomitant]
     Indication: PAIN
     Dosage: 5 PERCENT
     Route: 065
  25. LORTAB [Concomitant]
     Indication: PAIN
     Dosage: 10/500 MG
     Route: 065
  26. MORPHINE [Concomitant]
     Dosage: 30 MILLIGRAM
     Route: 048
  27. COUMADIN [Concomitant]
     Dosage: 7.5 MILLIGRAM
     Route: 048
     Dates: start: 20091110
  28. TIZANIDINE HCL [Concomitant]
     Indication: PAIN
     Dosage: 4 MILLIGRAM
     Route: 065
  29. HYDROXYZINE PAMOATE [Concomitant]
     Indication: ANXIETY
     Dosage: 25 MILLIGRAM
     Route: 065
  30. CITRATE OF MAGNESIA [Concomitant]
     Dosage: 1 CAPFUL
     Route: 065
  31. FIORICET [Concomitant]
     Route: 065
  32. GABAPENTIN [Concomitant]
     Dosage: 800 MILLIGRAM
     Route: 048
  33. SIMETHICONE [Concomitant]
     Dosage: 80 MILLIGRAM
     Route: 065
  34. WARFARIN SODIUM [Concomitant]
     Dosage: 5 MILLIGRAM
     Route: 065
  35. LORTAB [Concomitant]
     Indication: BREAKTHROUGH PAIN
  36. PREDNISONE [Concomitant]
     Dosage: 7 TABLET
     Route: 048
  37. PROMETHAZINE HCL [Concomitant]
     Indication: NAUSEA
     Dosage: 25 MILLIGRAM
     Route: 048
  38. SIMETHICONE [Concomitant]
     Dosage: 125 MILLIGRAM
     Route: 048
  39. FIBER LAXATIVE [Concomitant]
     Route: 065

REACTIONS (9)
  - NEUTROPENIA [None]
  - MONOCLONAL IMMUNOGLOBULIN PRESENT [None]
  - PAIN IN EXTREMITY [None]
  - DEATH [None]
  - DEEP VEIN THROMBOSIS [None]
  - THROMBOCYTOPENIA [None]
  - CONSTIPATION [None]
  - HAEMOGLOBIN DECREASED [None]
  - URINARY TRACT INFECTION [None]
